FAERS Safety Report 24329308 (Version 1)
Quarter: 2024Q3

REPORT INFORMATION
  Report Type: Spontaneous
  Country: US (occurrence: US)
  Receive Date: 20240917
  Receipt Date: 20240917
  Transmission Date: 20241016
  Serious: No
  Sender: BRISTOL MYERS SQUIBB
  Company Number: US-BRISTOL-MYERS SQUIBB COMPANY-2024-146920

PATIENT
  Sex: Female

DRUGS (1)
  1. KENALOG [Suspect]
     Active Substance: TRIAMCINOLONE ACETONIDE
     Indication: Seasonal allergy
     Dosage: FREQUENCY: ONCE
     Route: 030
     Dates: start: 202402

REACTIONS (6)
  - Pilonidal disease [Unknown]
  - Arthralgia [Unknown]
  - Musculoskeletal discomfort [Unknown]
  - Scar [Unknown]
  - Skin discolouration [Unknown]
  - Product administration error [Unknown]

NARRATIVE: CASE EVENT DATE: 20240201
